FAERS Safety Report 13902773 (Version 2)
Quarter: 2017Q3

REPORT INFORMATION
  Report Type: Report from Study
  Country: CA (occurrence: CA)
  Receive Date: 20170824
  Receipt Date: 20170919
  Transmission Date: 20171127
  Serious: Yes (Other)
  Sender: FDA-Public Use
  Company Number: CA-ROCHE-1967513

PATIENT
  Sex: Male
  Weight: 77 kg

DRUGS (2)
  1. AVASTIN [Suspect]
     Active Substance: BEVACIZUMAB
     Dosage: NEXT DOSE ON 17/AUG/2017 AT THIS DOSE
     Route: 042
     Dates: start: 20170720
  2. AVASTIN [Suspect]
     Active Substance: BEVACIZUMAB
     Indication: BRAIN NEOPLASM MALIGNANT
     Dosage: INITIAL DOSING DETAILS UNKNOWN
     Route: 042
     Dates: start: 201608

REACTIONS (3)
  - Hemiparesis [Unknown]
  - Paraesthesia [Unknown]
  - Hiccups [Unknown]
